FAERS Safety Report 7357580-6 (Version None)
Quarter: 2011Q1

REPORT INFORMATION
  Report Type: 
  Country: None (occurrence: None)
  Receive Date: 20110317
  Receipt Date: 20110221
  Transmission Date: 20110831
  Serious: Yes (Death, Hospitalization, Other)
  Sender: FDA-Public Use
  Company Number: US-BAYER-200939785NA

PATIENT
  Sex: Male
  Weight: 82.4 kg

DRUGS (23)
  1. AXID [Concomitant]
     Dosage: 150 MG, QD
     Route: 048
     Dates: start: 20000101
  2. ASPIRIN [Concomitant]
     Dosage: UNK
     Dates: start: 20010101
  3. ZOCOR [Concomitant]
     Dosage: 10 MG, QD
     Route: 048
     Dates: start: 20010101
  4. SORBITRATE [Concomitant]
     Dosage: 40 MG, QD
     Route: 048
     Dates: start: 20000101
  5. DIGOXIN [Concomitant]
     Dosage: 0.125 MG, QD
     Dates: start: 20010101
  6. ZESTRIL [Concomitant]
     Dosage: 2.5 MG, QD
     Route: 048
     Dates: start: 20010601
  7. DOPAMINE [Concomitant]
     Dosage: 4 MCG/KG/MINUTE
     Route: 042
     Dates: start: 20010824
  8. DILACOR XR [Concomitant]
     Dosage: 180 MG, QD
     Route: 048
     Dates: start: 20000101
  9. MEVACOR [Concomitant]
     Dosage: 20 MG, QD
     Route: 048
     Dates: start: 20000101
  10. TRASYLOL [Suspect]
     Indication: CORONARY ARTERY BYPASS
     Dosage: UNK
     Route: 042
     Dates: start: 20010824, end: 20010824
  11. CARDURA [Concomitant]
     Dosage: 4 MG, QD
     Route: 048
     Dates: start: 20000101
  12. CORGARD [Concomitant]
     Dosage: 40 MG, QD
     Route: 048
     Dates: start: 20000101
  13. PLAVIX [Concomitant]
     Dosage: 75 MG, QD
     Route: 048
     Dates: start: 20000101
  14. LIDOCAINE [Concomitant]
     Dosage: UNK
     Route: 042
     Dates: start: 20010905
  15. NITROGLYCERIN [Concomitant]
     Dosage: UNK
     Dates: start: 20010823
  16. CARAFATE [Concomitant]
     Dosage: UNK
     Dates: start: 20010826
  17. LEVOPHED [Concomitant]
     Dosage: 14MCG/MINUTE - 16MCG/MINUTE
     Route: 042
     Dates: start: 20010907
  18. AMIODARONE [Concomitant]
     Dosage: UNK
     Dates: start: 20010905
  19. AMITRIPTLINE HYDROCHLORIDE TAB [Concomitant]
     Dosage: UNK
     Dates: start: 20010101
  20. PLATELETS [Concomitant]
     Dosage: UNK
     Dates: start: 20010826
  21. LEVOPHED [Concomitant]
     Dosage: 3-10 MCG/MINUTE
     Route: 042
     Dates: start: 20010905
  22. NITROGLYCERIN [Concomitant]
     Dosage: UNK UNK, PRN
     Route: 060
     Dates: start: 20000101
  23. EPINEPHRINE [Concomitant]
     Dosage: UNK
     Dates: start: 20010905

REACTIONS (13)
  - EMOTIONAL DISTRESS [None]
  - ANXIETY [None]
  - FEAR [None]
  - RENAL IMPAIRMENT [None]
  - UNEVALUABLE EVENT [None]
  - INJURY [None]
  - MULTI-ORGAN FAILURE [None]
  - STRESS [None]
  - RENAL INJURY [None]
  - RENAL FAILURE [None]
  - DEATH [None]
  - ANHEDONIA [None]
  - PAIN [None]
